FAERS Safety Report 9825976 (Version 4)
Quarter: 2014Q1

REPORT INFORMATION
  Report Type: Spontaneous
  Country: AR (occurrence: AR)
  Receive Date: 20140117
  Receipt Date: 20140313
  Transmission Date: 20141002
  Serious: Yes (Other)
  Sender: FDA-Public Use
  Company Number: AR-AMGEN-ARGSP2013090992

PATIENT
  Age: 61 Year
  Sex: Female

DRUGS (8)
  1. ENBREL [Suspect]
     Indication: RHEUMATOID ARTHRITIS
     Dosage: 50 MG, WEEKLY
     Route: 065
     Dates: start: 20090701, end: 201312
  2. ERVEMIN                            /00113801/ [Concomitant]
     Dosage: 15 MG, WEEKLY
  3. MEPREDNISONE [Concomitant]
     Dosage: 4 MG, 1X/DAY
  4. OMEPRAZOL                          /00661201/ [Concomitant]
     Dosage: 20 MG, 1X/DAY
  5. ERGOCALCIFEROL [Concomitant]
     Dosage: 10 UNK, WEEKLY
  6. ALENDRONATO [Concomitant]
     Dosage: 70 MG, WEEKLY
  7. NAPROXEN [Concomitant]
     Dosage: UNK
  8. LOTRIAL                            /00574902/ [Concomitant]
     Dosage: 5 MG, DAILY

REACTIONS (6)
  - Skin papilloma [Recovering/Resolving]
  - Vomiting [Recovered/Resolved]
  - Laryngeal cyst [Recovering/Resolving]
  - Aphonia [Not Recovered/Not Resolved]
  - Pain in extremity [Not Recovered/Not Resolved]
  - Hypertension [Unknown]
